FAERS Safety Report 5117971-0 (Version None)
Quarter: 2006Q3

REPORT INFORMATION
  Report Type: 
  Country: None (occurrence: None)
  Receive Date: 20060926
  Receipt Date: 20060601
  Transmission Date: 20061208
  Serious: Yes (Hospitalization)
  Sender: FDA-Public Use
  Company Number: 1713747 / 2006 / 000007

PATIENT
  Age: 47 Year
  Sex: Male

DRUGS (1)
  1. STAY SAFE 2.5% DEX. LM/LC 2.5/31, 5PK [Suspect]
     Indication: RENAL FAILURE CHRONIC
     Dosage: INTRAPERITONEALLY
     Route: 033
     Dates: start: 20060529

REACTIONS (3)
  - DEVICE FAILURE [None]
  - DIALYSIS DEVICE COMPLICATION [None]
  - PHARMACEUTICAL PRODUCT COMPLAINT [None]
